FAERS Safety Report 15998625 (Version 5)
Quarter: 2019Q2

REPORT INFORMATION
  Report Type: Spontaneous
  Country: DE (occurrence: DE)
  Receive Date: 20190223
  Receipt Date: 20190501
  Transmission Date: 20190711
  Serious: Yes (Hospitalization, Other)
  Sender: FDA-Public Use
  Company Number: DE-ACCORD-108471

PATIENT
  Age: 34 Year
  Sex: Male

DRUGS (19)
  1. ZUCLOPENTHIXOL/ZUCLOPENTHIXOL ACETATE/ZUCLOPENTHIXOL DECANOATE/ZUCLOPENTHIXOL HYDROCHLORIDE [Suspect]
     Active Substance: ZUCLOPENTHIXOL
     Indication: PRODUCT USED FOR UNKNOWN INDICATION
     Dosage: ALSO RECEIVED 200 MG FROM 22-AUG-2017 TO 10-SEP-2017
     Route: 048
     Dates: start: 20170821
  2. DIAZEPAM. [Suspect]
     Active Substance: DIAZEPAM
     Indication: PRODUCT USED FOR UNKNOWN INDICATION
     Route: 048
     Dates: start: 20170906
  3. LITHIUM CARBONATE. [Concomitant]
     Active Substance: LITHIUM CARBONATE
     Route: 048
     Dates: start: 20170906, end: 20170910
  4. CLEXANE [Concomitant]
     Active Substance: ENOXAPARIN SODIUM
     Indication: ANTICOAGULANT THERAPY
     Dosage: 0.6 IU, QD RECENT DOSE ON 01/OCT/2017
     Route: 058
     Dates: start: 20170809, end: 20171001
  5. LITHIUM CARBONATE. [Concomitant]
     Active Substance: LITHIUM CARBONATE
     Route: 048
     Dates: start: 20170829
  6. DIAZEPAM. [Suspect]
     Active Substance: DIAZEPAM
     Indication: PRODUCT USED FOR UNKNOWN INDICATION
     Dosage: 20 MG, QD
     Route: 048
     Dates: start: 20170803, end: 20170803
  7. AKINETON [Concomitant]
     Active Substance: BIPERIDEN HYDROCHLORIDE
     Indication: PRODUCT USED FOR UNKNOWN INDICATION
     Dosage: 4 MG, QD
     Route: 048
     Dates: start: 20170808, end: 20170910
  8. DIAZEPAM. [Suspect]
     Active Substance: DIAZEPAM
     Indication: PRODUCT USED FOR UNKNOWN INDICATION
     Route: 048
     Dates: start: 20170907, end: 20170909
  9. ZUCLOPENTHIXOL/ZUCLOPENTHIXOL ACETATE/ZUCLOPENTHIXOL DECANOATE/ZUCLOPENTHIXOL HYDROCHLORIDE [Concomitant]
     Route: 048
     Dates: start: 20170822, end: 20170910
  10. OLANZAPINE. [Suspect]
     Active Substance: OLANZAPINE
     Indication: PRODUCT USED FOR UNKNOWN INDICATION
     Route: 048
     Dates: start: 20170815, end: 20170910
  11. CLOZAPINE. [Suspect]
     Active Substance: CLOZAPINE
     Indication: PRODUCT USED FOR UNKNOWN INDICATION
     Dosage: 20 MG FROM 03-AUG-2017 TO 03-AUG-2017,?25 MG FROM 06-SEP-2017 TO 07-SEP-2017
     Route: 048
     Dates: start: 20170910
  12. OLANZAPINE. [Suspect]
     Active Substance: OLANZAPINE
     Indication: PRODUCT USED FOR UNKNOWN INDICATION
     Dosage: 30 MG FROM 15-AUG-2017 TO 10-SEP-2017.
     Route: 048
     Dates: start: 20170815, end: 20170910
  13. DIAZEPAM. [Suspect]
     Active Substance: DIAZEPAM
     Indication: PRODUCT USED FOR UNKNOWN INDICATION
     Route: 048
     Dates: start: 20170804, end: 20170825
  14. ABILIFY [Suspect]
     Active Substance: ARIPIPRAZOLE
     Indication: PRODUCT USED FOR UNKNOWN INDICATION
     Dosage: 30 MG, OM, FOR WEEKS
     Route: 048
     Dates: end: 20170910
  15. LITHIUM APOGEPHA [Concomitant]
     Active Substance: LITHIUM CARBONATE
     Dosage: 450 MG FROM 29-AUG-2017,?900 MG FROM 30-AUG-2017 TO 05-SEP-2017
     Route: 048
     Dates: start: 20170906, end: 20170910
  16. DIAZEPAM. [Suspect]
     Active Substance: DIAZEPAM
     Indication: PRODUCT USED FOR UNKNOWN INDICATION
     Route: 048
     Dates: start: 20170910
  17. OLANZAPINE. [Suspect]
     Active Substance: OLANZAPINE
     Indication: PRODUCT USED FOR UNKNOWN INDICATION
     Dosage: 10 MG, QD
     Route: 048
     Dates: start: 20170810, end: 20170811
  18. DIAZEPAM. [Suspect]
     Active Substance: DIAZEPAM
     Indication: PRODUCT USED FOR UNKNOWN INDICATION
     Dosage: 20 MG FROM 03-AUG-2017 TO 03-AUG-2017,?40 MG FROM 04-AUG-2017 TO 25-AUG-2017
     Route: 048
     Dates: start: 20170910
  19. HALOPERIDOL. [Concomitant]
     Active Substance: HALOPERIDOL
     Indication: PRODUCT USED FOR UNKNOWN INDICATION
     Dosage: 3 MG, QD (0-0-1)
     Route: 065

REACTIONS (18)
  - Patient restraint [Unknown]
  - Respiratory failure [Recovered/Resolved]
  - Delusion [Unknown]
  - Lung infiltration [Unknown]
  - Dysphagia [Recovered/Resolved]
  - Aspiration [Unknown]
  - Aggression [Unknown]
  - Tension [Unknown]
  - Hyporeflexia [Unknown]
  - Gastritis [Unknown]
  - Acute respiratory failure [Recovered/Resolved]
  - Salivary hypersecretion [Recovered/Resolved]
  - Self-injurious ideation [Unknown]
  - Pleural effusion [Unknown]
  - Duodenitis [Unknown]
  - Thinking abnormal [Unknown]
  - Pneumonia aspiration [Recovered/Resolved]
  - Psychotic symptom [Unknown]

NARRATIVE: CASE EVENT DATE: 20170909
